FAERS Safety Report 9105611 (Version 3)
Quarter: 2013Q2

REPORT INFORMATION
  Report Type: Spontaneous
  Country: ES (occurrence: ES)
  Receive Date: 20130220
  Receipt Date: 20130419
  Transmission Date: 20140414
  Serious: Yes (Death, Hospitalization)
  Sender: FDA-Public Use
  Company Number: ES-GENZYME-THYM-1003644

PATIENT
  Age: 44 Year
  Sex: Female

DRUGS (5)
  1. THYMOGLOBULINE [Suspect]
     Indication: BONE MARROW CONDITIONING REGIMEN
     Dosage: 200 MG, UNK, ONE CYCLE
     Route: 042
     Dates: start: 20110612, end: 20110614
  2. FLUDARA [Suspect]
     Indication: BONE MARROW CONDITIONING REGIMEN
     Dosage: UNK, ONE CYCLE
     Route: 042
     Dates: start: 20110610, end: 20110613
  3. CYCLOPHOSPHAMIDE [Concomitant]
     Indication: BONE MARROW CONDITIONING REGIMEN
     Dosage: UNK, ONE CYCLE
     Route: 042
     Dates: start: 20110606, end: 20110609
  4. CYCLOSPORINE [Concomitant]
     Indication: PROPHYLAXIS AGAINST TRANSPLANT REJECTION
     Dosage: UNK
     Route: 048
     Dates: start: 201106
  5. METHOTREXATE [Concomitant]
     Indication: PROPHYLAXIS AGAINST TRANSPLANT REJECTION
     Dosage: UNK
     Route: 048
     Dates: start: 201106

REACTIONS (4)
  - Bone marrow failure [Fatal]
  - Respiratory failure [Fatal]
  - Cardiac arrest [Fatal]
  - Post transplant lymphoproliferative disorder [Recovered/Resolved]
